FAERS Safety Report 19845211 (Version 2)
Quarter: 2021Q3

REPORT INFORMATION
  Report Type: Spontaneous
  Country: US (occurrence: US)
  Receive Date: 20210916
  Receipt Date: 20210928
  Transmission Date: 20211014
  Serious: Yes (Other)
  Sender: FDA-Public Use
  Company Number: US-TEVA-2021-US-1952577

PATIENT
  Sex: Male

DRUGS (10)
  1. BUROSUMAB [Suspect]
     Active Substance: BUROSUMAB
     Indication: ALBRIGHT^S DISEASE
  2. LETROZOLE. [Concomitant]
     Active Substance: LETROZOLE
     Indication: PRECOCIOUS PUBERTY
     Route: 065
  3. ZOLEDRONATE [Suspect]
     Active Substance: ZOLEDRONIC ACID
     Indication: FIBROUS DYSPLASIA OF BONE
     Dosage: INFUSION
     Route: 065
  4. PHOSPHOROUS [Suspect]
     Active Substance: PHOSPHORUS
     Indication: HYPOPHOSPHATAEMIA
     Dosage: 55 MG/KG DAILY;
     Route: 048
  5. OCTREOTIDE. [Concomitant]
     Active Substance: OCTREOTIDE
     Indication: BLOOD GROWTH HORMONE INCREASED
     Route: 065
  6. BICALUTAMIDE. [Concomitant]
     Active Substance: BICALUTAMIDE
     Indication: PRECOCIOUS PUBERTY
     Route: 065
  7. CALCITRIOL. [Suspect]
     Active Substance: CALCITRIOL
     Indication: HYPOPHOSPHATAEMIA
     Dosage: DOSE: 80NG/KG
     Route: 048
  8. METHIMAZOLE. [Concomitant]
     Active Substance: METHIMAZOLE
     Indication: HYPERTHYROIDISM
     Route: 065
  9. BUROSUMAB [Suspect]
     Active Substance: BUROSUMAB
     Indication: FIBROUS DYSPLASIA OF BONE
     Dosage: DOSE: 20MG
     Route: 058
  10. ZOLEDRONATE [Suspect]
     Active Substance: ZOLEDRONIC ACID
     Indication: ALBRIGHT^S DISEASE

REACTIONS (6)
  - Off label use [Unknown]
  - Nephrocalcinosis [Unknown]
  - Hypercalciuria [Unknown]
  - Fanconi syndrome acquired [Recovered/Resolved]
  - Gastrointestinal disorder [Unknown]
  - Malabsorption [Unknown]
